FAERS Safety Report 5728129-6 (Version None)
Quarter: 2008Q2

REPORT INFORMATION
  Report Type: 
  Country: None (occurrence: None)
  Receive Date: 20080505
  Receipt Date: 20080424
  Transmission Date: 20081010
  Serious: Yes (Hospitalization)
  Sender: FDA-Public Use
  Company Number: GB-MERCK-0801GBR00115

PATIENT
  Age: 72 Year
  Sex: Male
  Weight: 91 kg

DRUGS (7)
  1. FOSAMAX [Suspect]
     Indication: OSTEOPOROSIS
     Route: 048
  2. FOSAMAX [Suspect]
     Indication: SPINAL FRACTURE
     Route: 048
  3. FUROSEMIDE [Concomitant]
     Indication: NEPHROTIC SYNDROME
     Route: 065
  4. RAMIPRIL [Concomitant]
     Indication: HYPERTENSION
     Route: 065
  5. RAMIPRIL [Concomitant]
     Indication: CARDIAC VENTRICULAR DISORDER
     Route: 065
  6. ALLOPURINOL [Concomitant]
     Indication: GOUT
     Route: 065
  7. ALLOPURINOL [Concomitant]
     Indication: RENAL FAILURE
     Route: 065

REACTIONS (1)
  - LIVER INJURY [None]
